FAERS Safety Report 15763783 (Version 2)
Quarter: 2021Q4

REPORT INFORMATION
  Report Type: Spontaneous
  Country: US (occurrence: US)
  Receive Date: 20181227
  Receipt Date: 20211124
  Transmission Date: 20220303
  Serious: Yes (Disabling, Other)
  Sender: FDA-Public Use
  Company Number: US-TEVA-2018-US-990944

PATIENT
  Age: 58 Year
  Sex: Female
  Weight: 70.3 kg

DRUGS (20)
  1. DOCETAXEL [Suspect]
     Active Substance: DOCETAXEL
     Indication: Breast cancer female
     Dosage: DOSE: 132MG , 4 CYCLES
     Route: 042
     Dates: start: 20151001, end: 20151203
  2. DOCETAXEL [Suspect]
     Active Substance: DOCETAXEL
     Indication: Breast cancer female
     Dosage: DOSE: 132MG , 5TH CYCLE.
     Route: 042
     Dates: start: 20151231, end: 20151231
  3. CARBOPLATIN [Suspect]
     Active Substance: CARBOPLATIN
     Indication: Breast cancer female
     Route: 042
     Dates: start: 20151001, end: 20151231
  4. PERJETA [Suspect]
     Active Substance: PERTUZUMAB
     Indication: Breast cancer female
     Dosage: DOSE: 420 MG
     Route: 042
     Dates: start: 20151001, end: 20151231
  5. HERCEPTIN [Suspect]
     Active Substance: TRASTUZUMAB
     Indication: Breast cancer female
     Dosage: DOSE: 420MG
     Route: 042
     Dates: start: 20151001
  6. NEXIUM [Concomitant]
     Active Substance: ESOMEPRAZOLE MAGNESIUM
     Dates: start: 2008
  7. MIRALAX [Concomitant]
     Active Substance: POLYETHYLENE GLYCOL 3350
     Dates: start: 2008
  8. ONDANSETRON HYDROCHLORIDE [Concomitant]
     Active Substance: ONDANSETRON HYDROCHLORIDE
     Dates: start: 1999
  9. HYDROCHLOROTHIAZIDE [Concomitant]
     Active Substance: HYDROCHLOROTHIAZIDE
     Dosage: 1 DOSAGE FORMS DAILY;
     Route: 048
     Dates: start: 1999
  10. PANTOPRAZOLE [Concomitant]
     Active Substance: PANTOPRAZOLE
     Dosage: 1 DOSAGE FORMS DAILY;
     Route: 048
     Dates: start: 1999
  11. ACETAMINOPHEN [Concomitant]
     Active Substance: ACETAMINOPHEN
     Dosage: 2 DOSAGE FORMS DAILY; AS NEEDED
     Route: 048
  12. ALPRAZOLAM [Concomitant]
     Active Substance: ALPRAZOLAM
     Indication: Anxiety
     Dosage: 3 DOSAGE FORMS DAILY;
     Route: 048
  13. MECLIZINE [Concomitant]
     Active Substance: MECLIZINE HYDROCHLORIDE
     Dosage: 3 DOSAGE FORMS DAILY; AS NEEDED
     Route: 048
  14. CYANOCOBALAMIN [Concomitant]
     Active Substance: CYANOCOBALAMIN
     Dosage: 2 DOSAGE FORMS DAILY;
     Route: 048
  15. VITAMINS [Concomitant]
     Active Substance: VITAMINS
     Dosage: 1 DOSAGE FORMS DAILY;
     Route: 048
  16. AMOXICILLIN [Concomitant]
     Active Substance: AMOXICILLIN
  17. IBUPROFEN [Concomitant]
     Active Substance: IBUPROFEN
  18. NEULASTA [Concomitant]
     Active Substance: PEGFILGRASTIM
  19. HEPARIN [Concomitant]
     Active Substance: HEPARIN SODIUM
  20. DEXAMETHASONE [Concomitant]
     Active Substance: DEXAMETHASONE

REACTIONS (26)
  - Alopecia areata [Not Recovered/Not Resolved]
  - Madarosis [Not Recovered/Not Resolved]
  - Neuropathy peripheral [Unknown]
  - Hypokalaemia [Unknown]
  - Onycholysis [Recovering/Resolving]
  - Hair texture abnormal [Not Recovered/Not Resolved]
  - Hair colour changes [Not Recovered/Not Resolved]
  - Nausea [Recovered/Resolved]
  - Headache [Unknown]
  - Decreased appetite [Unknown]
  - Dizziness [Recovered/Resolved]
  - Lacrimation increased [Unknown]
  - Asthenia [Unknown]
  - Dehydration [Unknown]
  - Diarrhoea [Recovered/Resolved]
  - Paronychia [Recovering/Resolving]
  - Blood creatinine decreased [Unknown]
  - Insomnia [Unknown]
  - Abdominal pain [Unknown]
  - Constipation [Recovered/Resolved]
  - Nail discolouration [Recovering/Resolving]
  - Drug intolerance [Unknown]
  - Temperature intolerance [Recovering/Resolving]
  - Hypoaesthesia [Unknown]
  - Pain in extremity [Unknown]
  - Onychalgia [Recovering/Resolving]

NARRATIVE: CASE EVENT DATE: 20150101
